FAERS Safety Report 5140756-6 (Version None)
Quarter: 2006Q4

REPORT INFORMATION
  Report Type: 
  Country: None (occurrence: None)
  Receive Date: 20061025
  Receipt Date: 20061025
  Transmission Date: 20070319
  Serious: Yes (Hospitalization)
  Sender: FDA-Public Use
  Company Number: 2006BL006003

PATIENT
  Age: 51 Year
  Sex: Female

DRUGS (4)
  1. DEXAMETHASONE [Suspect]
     Indication: CHEMOTHERAPY
     Dosage: 8 MILLIGRAMS; INTRAVENOUS
     Route: 042
     Dates: start: 20050721, end: 20050831
  2. CARBOPLATIN [Concomitant]
  3. CISPLATIN [Concomitant]
  4. PACLITAXEL [Concomitant]

REACTIONS (3)
  - RASH MACULAR [None]
  - SWOLLEN TONGUE [None]
  - TACHYCARDIA [None]
